FAERS Safety Report 26135945 (Version 2)
Quarter: 2025Q4

REPORT INFORMATION
  Report Type: Spontaneous
  Country: ID (occurrence: ID)
  Receive Date: 20251209
  Receipt Date: 20251212
  Transmission Date: 20260118
  Serious: Yes (Hospitalization, Other)
  Sender: PFIZER
  Company Number: ID-MLMSERVICE-20251126-PI727540-00059-1

PATIENT
  Age: 45 Year
  Sex: Female

DRUGS (5)
  1. METHYLPREDNISOLONE [Suspect]
     Active Substance: METHYLPREDNISOLONE
     Indication: Immunosuppressant drug therapy
     Dosage: 4 MG (12 H;LONG-TERM)
     Dates: start: 202112, end: 202209
  2. AZATHIOPRINE [Suspect]
     Active Substance: AZATHIOPRINE
     Indication: Immunosuppressant drug therapy
     Dosage: 50 MG (12 H;LONG-TERM)
     Dates: start: 202112, end: 202209
  3. FOLIC ACID [Concomitant]
     Active Substance: FOLIC ACID
     Dates: start: 202112
  4. CALCIUM LACTATE [Concomitant]
     Active Substance: CALCIUM LACTATE
     Dates: start: 202112
  5. LANSOPRAZOLE [Concomitant]
     Active Substance: LANSOPRAZOLE
     Dates: start: 202112

REACTIONS (2)
  - Pulmonary tuberculosis [Recovering/Resolving]
  - Mycobacterial infection [Recovering/Resolving]

NARRATIVE: CASE EVENT DATE: 20220801
